FAERS Safety Report 11378672 (Version 1)
Quarter: 2015Q3

REPORT INFORMATION
  Report Type: Spontaneous
  Country: US (occurrence: None)
  Receive Date: 20150812
  Receipt Date: 20150812
  Transmission Date: 20151125
  Serious: Yes (Life-Threatening, Hospitalization, Other)
  Sender: FDA-Public Use
  Company Number: ADR-2008-5398

PATIENT
  Age: 63 Year
  Sex: Female

DRUGS (1)
  1. LIORESAL [Suspect]
     Active Substance: BACLOFEN
     Indication: MUSCLE SPASTICITY

REACTIONS (7)
  - Accidental overdose [None]
  - Dizziness [None]
  - Device dislocation [None]
  - Heart rate decreased [None]
  - Respiratory depression [None]
  - Gallbladder operation [None]
  - Somnolence [None]

NARRATIVE: CASE EVENT DATE: 20080717
